FAERS Safety Report 25005852 (Version 1)
Quarter: 2025Q1

REPORT INFORMATION
  Report Type: Spontaneous
  Country: US (occurrence: US)
  Receive Date: 20250224
  Receipt Date: 20250224
  Transmission Date: 20250408
  Serious: Yes (Other)
  Sender: AMGEN
  Company Number: US-AMGEN-USASP2025032752

PATIENT
  Age: 56 Year
  Sex: Female
  Weight: 67.1 kg

DRUGS (25)
  1. PROLIA [Suspect]
     Active Substance: DENOSUMAB
     Indication: Product used for unknown indication
     Route: 065
  2. TYVASO [Suspect]
     Active Substance: TREPROSTINIL
     Indication: Pulmonary arterial hypertension
     Dosage: 48 MICROGRAM, QID
  3. TYVASO [Suspect]
     Active Substance: TREPROSTINIL
  4. TYVASO [Suspect]
     Active Substance: TREPROSTINIL
  5. TYVASO [Suspect]
     Active Substance: TREPROSTINIL
  6. TYVASO [Suspect]
     Active Substance: TREPROSTINIL
     Dosage: 64 GRAM, QID
  7. ANASTROZOLE [Concomitant]
     Active Substance: ANASTROZOLE
  8. ADCIRCA [Concomitant]
     Active Substance: TADALAFIL
  9. AMLODIPINE BESYLATE [Concomitant]
     Active Substance: AMLODIPINE BESYLATE
  10. ACETAMINOPHEN\HYDROCODONE [Concomitant]
     Active Substance: ACETAMINOPHEN\HYDROCODONE
  11. SPIRONOLACTONE [Concomitant]
     Active Substance: SPIRONOLACTONE
  12. VITAMIN C [Concomitant]
     Active Substance: ASCORBIC ACID
  13. TYLENOL EXTRA STRENGTH [Concomitant]
     Active Substance: ACETAMINOPHEN
  14. CLONAZEPAM [Concomitant]
     Active Substance: CLONAZEPAM
  15. ZINC [Concomitant]
     Active Substance: ZINC
  16. VITAMINS [Concomitant]
     Active Substance: VITAMINS
  17. HYDROCHLOROTHIAZIDE [Concomitant]
     Active Substance: HYDROCHLOROTHIAZIDE
  18. CORTISONE ACETATE [Concomitant]
     Active Substance: CORTISONE ACETATE
  19. CALTRATE WITH VITAMIN D [Concomitant]
     Active Substance: CALCIUM CARBONATE\CHOLECALCIFEROL
  20. LASIX [Concomitant]
     Active Substance: FUROSEMIDE
  21. POTASSIUM CHLORIDE [Concomitant]
     Active Substance: POTASSIUM CHLORIDE
  22. OMEPRAZOLE [Concomitant]
     Active Substance: OMEPRAZOLE
  23. DOXYCYCLINE HYCLATE [Concomitant]
     Active Substance: DOXYCYCLINE HYCLATE
  24. CALTRATE [Concomitant]
     Active Substance: CALCIUM CARBONATE
  25. AUGMENTIN [Concomitant]
     Active Substance: AMOXICILLIN\CLAVULANATE POTASSIUM

REACTIONS (22)
  - Neoplasm malignant [Unknown]
  - Renal cancer [Unknown]
  - Myocardial infarction [Unknown]
  - Osteonecrosis of jaw [Unknown]
  - COVID-19 [Unknown]
  - Malaise [Unknown]
  - Cough [Unknown]
  - Nausea [Unknown]
  - Breast discomfort [Unknown]
  - Post procedural complication [Unknown]
  - Memory impairment [Unknown]
  - Dehydration [Unknown]
  - Ear infection [Unknown]
  - Oropharyngeal pain [Unknown]
  - Seasonal allergy [Unknown]
  - Weight increased [Unknown]
  - Tooth abscess [Unknown]
  - Jaw disorder [Unknown]
  - Cancer in remission [Unknown]
  - Product dose omission issue [Unknown]
  - Breast cancer [Unknown]
  - Fatigue [Unknown]

NARRATIVE: CASE EVENT DATE: 20220823
